FAERS Safety Report 5126492-0 (Version None)
Quarter: 2006Q4

REPORT INFORMATION
  Report Type: 
  Country: None (occurrence: None)
  Receive Date: 20061010
  Receipt Date: 20060927
  Transmission Date: 20070319
  Serious: Yes (Death)
  Sender: FDA-Public Use
  Company Number: 06H-163-0310530-00

PATIENT
  Age: 43 Year
  Sex: Male

DRUGS (7)
  1. DIAZEPAM [Suspect]
  2. VERAPAMIL HCL [Suspect]
  3. QUETIAPINE FUMARATE [Suspect]
  4. BUPROPION HCL [Suspect]
  5. PAROXETINE [Suspect]
  6. ZOLPIDEM TARTRATE [Suspect]
  7. ETHANOL (ETHANOL) [Suspect]

REACTIONS (5)
  - CARDIOMEGALY [None]
  - DRUG TOXICITY [None]
  - HEPATIC STEATOSIS [None]
  - LOSS OF CONSCIOUSNESS [None]
  - PULMONARY OEDEMA [None]
